FAERS Safety Report 7657089-6 (Version None)
Quarter: 2011Q3

REPORT INFORMATION
  Report Type: 
  Country: None (occurrence: None)
  Receive Date: 20110804
  Receipt Date: 20100927
  Transmission Date: 20111222
  Serious: No
  Sender: FDA-Public Use
  Company Number: US-GLAXOSMITHKLINE-A0883535A

PATIENT
  Age: 50 Year
  Sex: Female

DRUGS (4)
  1. PRILOSEC [Concomitant]
  2. ADVAIR DISKUS 100/50 [Suspect]
     Route: 055
  3. ZYRTEC [Concomitant]
  4. ADVAIR DISKUS 100/50 [Suspect]
     Indication: ASTHMA
     Dosage: 1PUFF TWICE PER DAY
     Route: 055

REACTIONS (8)
  - SPEECH DISORDER [None]
  - THROAT IRRITATION [None]
  - SENSATION OF FOREIGN BODY [None]
  - COUGH [None]
  - PHARYNGEAL OEDEMA [None]
  - PRODUCT QUALITY ISSUE [None]
  - DYSPHONIA [None]
  - PHARYNGEAL ERYTHEMA [None]
